FAERS Safety Report 24757807 (Version 1)
Quarter: 2024Q4

REPORT INFORMATION
  Report Type: Spontaneous
  Country: US (occurrence: US)
  Receive Date: 20241220
  Receipt Date: 20241220
  Transmission Date: 20250115
  Serious: No
  Sender: AMGEN
  Company Number: US-AMGEN-USASP2024248575

PATIENT
  Age: 30 Year
  Sex: Female

DRUGS (2)
  1. AIMOVIG [Suspect]
     Active Substance: ERENUMAB\ERENUMAB-AOOE
     Indication: Product used for unknown indication
     Dosage: 70 MILLIGRAM
     Route: 065
     Dates: start: 202104, end: 2024
  2. AIMOVIG [Suspect]
     Active Substance: ERENUMAB\ERENUMAB-AOOE
     Dosage: 140 MILLIGRAM, QMO
     Route: 058
     Dates: start: 202411

REACTIONS (2)
  - Injection site pain [Unknown]
  - Wrong technique in product usage process [Unknown]

NARRATIVE: CASE EVENT DATE: 20241211
